FAERS Safety Report 7473255-7 (Version None)
Quarter: 2011Q2

REPORT INFORMATION
  Report Type: 
  Country: None (occurrence: None)
  Receive Date: 20110511
  Receipt Date: 20110509
  Transmission Date: 20111010
  Serious: Yes (Hospitalization)
  Sender: FDA-Public Use
  Company Number: B0718297A

PATIENT
  Age: 59 Year
  Sex: Male

DRUGS (1)
  1. AVANDIA [Suspect]
     Dosage: 8MG PER DAY
     Route: 048
     Dates: start: 20030101, end: 20090601

REACTIONS (5)
  - CORONARY ARTERY DISEASE [None]
  - CATHETER PLACEMENT [None]
  - CHEST PAIN [None]
  - ANGIOGRAM [None]
  - ARRHYTHMIA [None]
